FAERS Safety Report 9964061 (Version 2)
Quarter: 2014Q1

REPORT INFORMATION
  Report Type: Report from Study
  Country: CA (occurrence: CA)
  Receive Date: 20140305
  Receipt Date: 20140310
  Transmission Date: 20141002
  Serious: Yes (Hospitalization)
  Sender: FDA-Public Use
  Company Number: CA-JNJFOC-20140218571

PATIENT
  Age: 16 Year
  Sex: Female
  Weight: 52 kg

DRUGS (6)
  1. REMICADE [Suspect]
     Indication: CROHN^S DISEASE
     Dosage: EVERY 0, 2, 6 AND THEN EVERY 8 WEEKS
     Route: 042
     Dates: start: 20140120
  2. SALOFALK [Concomitant]
     Route: 065
  3. PREDNISONE [Concomitant]
     Route: 065
  4. URSODIOL [Concomitant]
     Route: 065
  5. FERROUS SULFATE [Concomitant]
     Route: 065
  6. BACTRIM [Concomitant]
     Route: 065

REACTIONS (4)
  - Salmonellosis [Recovering/Resolving]
  - Cystitis [Not Recovered/Not Resolved]
  - Dehydration [Recovering/Resolving]
  - Heart rate increased [Recovering/Resolving]
